FAERS Safety Report 8900823 (Version 2)
Quarter: 2012Q4

REPORT INFORMATION
  Report Type: 
  Country: PT (occurrence: PT)
  Receive Date: 20121109
  Receipt Date: 20121217
  Transmission Date: 20130627
  Serious: Yes (Life-Threatening, Hospitalization)
  Sender: FDA-Public Use
  Company Number: PT-EISAI INC-E2090-02390-SPO-PT

PATIENT
  Age: 19 Year
  Sex: Female

DRUGS (4)
  1. ZONEGRAN [Suspect]
     Indication: EPILEPSY
     Route: 048
     Dates: start: 20121028, end: 20121103
  2. CARBAMAZEPINE [Concomitant]
     Indication: EPILEPSY
     Dosage: 800 mg/day
     Route: 048
  3. PRIMIDONE [Concomitant]
     Indication: EPILEPSY
     Dosage: 125 mg/day
     Route: 048
  4. CLOBAZAM [Concomitant]
     Indication: EPILEPSY
     Dosage: 5 mg/day
     Route: 048

REACTIONS (1)
  - Toxic epidermal necrolysis [Recovered/Resolved]
